FAERS Safety Report 17022710 (Version 1)
Quarter: 2019Q4

REPORT INFORMATION
  Report Type: Spontaneous
  Country: US (occurrence: US)
  Receive Date: 20191112
  Receipt Date: 20191112
  Transmission Date: 20200122
  Serious: Yes (Hospitalization, Other)
  Sender: FDA-Public Use
  Company Number: US-PFIZER INC-2019480740

PATIENT
  Age: 79 Year
  Sex: Female
  Weight: 72.57 kg

DRUGS (2)
  1. MENTHOL [LEVOMENTHOL] [Suspect]
     Active Substance: LEVOMENTHOL
     Dosage: UNK
     Dates: end: 2019
  2. ROBITUSSIN COUGH AND CHEST CONGESTION DM MAX [Suspect]
     Active Substance: DEXTROMETHORPHAN HYDROBROMIDE\GUAIFENESIN
     Dosage: 20 MG, UNK (20MG DRINK FROM CUP ONCE)
     Dates: end: 2019

REACTIONS (5)
  - Fall [Unknown]
  - Abdominal discomfort [Recovering/Resolving]
  - Dyspepsia [Unknown]
  - Facial bones fracture [Unknown]
  - Reaction to excipient [Unknown]

NARRATIVE: CASE EVENT DATE: 201910
